FAERS Safety Report 26174066 (Version 1)
Quarter: 2025Q4

REPORT INFORMATION
  Report Type: Spontaneous
  Country: US (occurrence: US)
  Receive Date: 20251218
  Receipt Date: 20251218
  Transmission Date: 20260118
  Serious: No
  Sender: NOVARTIS
  Company Number: US-002147023-NVSC2025US190953

PATIENT
  Sex: Female

DRUGS (2)
  1. KESIMPTA [Suspect]
     Active Substance: OFATUMUMAB
     Indication: Multiple sclerosis
     Dosage: UNK
     Route: 065
     Dates: start: 202308
  2. OCREVUS [Concomitant]
     Active Substance: OCRELIZUMAB
     Indication: Multiple sclerosis
     Dosage: UNK
     Route: 065

REACTIONS (2)
  - Central pain syndrome [Unknown]
  - Emotional disorder [Unknown]
